FAERS Safety Report 24169404 (Version 1)
Quarter: 2024Q3

REPORT INFORMATION
  Report Type: Other
  Country: CN (occurrence: CN)
  Receive Date: 20240802
  Receipt Date: 20240802
  Transmission Date: 20241016
  Serious: Yes (Life-Threatening, Hospitalization, Other)
  Sender: GENUS LIFESCIENCES
  Company Number: CN-Genus_Lifesciences-USA-POI0580202400143

PATIENT
  Age: 81 Year
  Sex: Male

DRUGS (2)
  1. YOSPRALA [Suspect]
     Active Substance: ASPIRIN\OMEPRAZOLE
     Indication: Antiplatelet therapy
     Dates: start: 2023
  2. CLOPIDOGREL [Concomitant]
     Active Substance: CLOPIDOGREL BISULFATE
     Indication: Antiplatelet therapy
     Dates: start: 2023

REACTIONS (1)
  - Mediastinal haematoma [Recovered/Resolved]

NARRATIVE: CASE EVENT DATE: 20230101
